FAERS Safety Report 9443616 (Version 1)
Quarter: 2013Q3

REPORT INFORMATION
  Report Type: Spontaneous
  Country: UA (occurrence: None)
  Receive Date: 20130802
  Receipt Date: 20130802
  Transmission Date: 20140515
  Serious: Yes (Other)
  Sender: FDA-Public Use
  Company Number: GPV/UKR/13/0028044

PATIENT
  Age: 74 Year
  Sex: Female

DRUGS (6)
  1. STAMLO [Suspect]
     Indication: HYPERTENSION
     Dosage: 5 MG 1 IN 24 HR, ORAL
     Route: 048
     Dates: start: 20110207
  2. CLOPIDOGREL [Concomitant]
  3. PANOCID [Concomitant]
  4. LORSITA [Concomitant]
  5. PHYSIOTENS [Concomitant]
  6. ATORIS [Concomitant]

REACTIONS (6)
  - Headache [None]
  - Dry mouth [None]
  - Abdominal pain [None]
  - Pollakiuria [None]
  - Dyspnoea [None]
  - Heart rate increased [None]
